FAERS Safety Report 6410230-5 (Version None)
Quarter: 2009Q4

REPORT INFORMATION
  Report Type: 
  Country: None (occurrence: None)
  Receive Date: 20091022
  Receipt Date: 20091013
  Transmission Date: 20100525
  Serious: Yes (Other)
  Sender: FDA-Public Use
  Company Number: PHHO2008CY14669

PATIENT
  Sex: Male
  Weight: 88 kg

DRUGS (9)
  1. CERTICAN [Suspect]
     Indication: METASTATIC NEOPLASM
     Dosage: 10 MG, QD
     Route: 048
     Dates: start: 20081020
  2. CERTICAN [Suspect]
     Dosage: 5 MG, ONCE/SINGLE
     Route: 048
     Dates: start: 20081001, end: 20090901
  3. SEVREDOL [Suspect]
     Dosage: 20 MG, PRN
     Route: 048
  4. NORFLOXACIN [Suspect]
     Dosage: 400 MG, BID
     Dates: start: 20090126, end: 20090201
  5. ZOLEDRONIC ACID [Concomitant]
  6. CALCIUM [Concomitant]
  7. VITAMIN D [Concomitant]
  8. VENLAFAXINE [Concomitant]
  9. MAGNESIUM HYDROXIDE TAB [Concomitant]

REACTIONS (10)
  - CONSTIPATION [None]
  - DISEASE PROGRESSION [None]
  - HYPOPHAGIA [None]
  - MALIGNANT NEOPLASM PROGRESSION [None]
  - METASTATIC NEOPLASM [None]
  - NAUSEA [None]
  - OFF LABEL USE [None]
  - URINARY TRACT INFECTION [None]
  - VOMITING [None]
  - WEIGHT DECREASED [None]
